FAERS Safety Report 12531422 (Version 1)
Quarter: 2016Q3

REPORT INFORMATION
  Report Type: Spontaneous
  Country: US (occurrence: US)
  Receive Date: 20160706
  Receipt Date: 20160706
  Transmission Date: 20161109
  Serious: No
  Sender: FDA-Public Use
  Company Number: US-MALLINCKRODT-T201503710

PATIENT
  Age: 72 Year
  Sex: Male
  Weight: 88.4 kg

DRUGS (2)
  1. OXYCODONE [Suspect]
     Active Substance: OXYCODONE
     Indication: PAIN
     Dosage: 5 MG, SINGLE
     Route: 048
     Dates: start: 20150723, end: 20150723
  2. OXYCODONE [Suspect]
     Active Substance: OXYCODONE
     Dosage: 5 MG, SINGLE
     Route: 048
     Dates: start: 20150726, end: 20150726

REACTIONS (3)
  - Constipation [Recovered/Resolved]
  - Intentional product use issue [Recovered/Resolved]
  - Intentional product misuse [Recovered/Resolved]

NARRATIVE: CASE EVENT DATE: 20150723
